FAERS Safety Report 26041034 (Version 1)
Quarter: 2025Q4

REPORT INFORMATION
  Report Type: Spontaneous
  Country: US (occurrence: None)
  Receive Date: 20251112
  Receipt Date: 20251112
  Transmission Date: 20260118
  Serious: No
  Sender: FDA-CTU
  Company Number: None

PATIENT
  Age: 65 Year
  Sex: Female
  Weight: 72 kg

DRUGS (2)
  1. DUPIXENT [Suspect]
     Active Substance: DUPILUMAB
     Indication: Eczema
     Dosage: 2X MONTH SUBCUTANEOUS?
     Route: 058
     Dates: start: 20231101, end: 20251001
  2. LOSARTAN [Concomitant]
     Active Substance: LOSARTAN

REACTIONS (7)
  - Arthralgia [None]
  - Eczematous cheilitis [None]
  - Eczema [None]
  - Eczema [None]
  - Eye pruritus [None]
  - Ocular hyperaemia [None]
  - Therapy cessation [None]

NARRATIVE: CASE EVENT DATE: 20251001
